FAERS Safety Report 5562671-6 (Version None)
Quarter: 2007Q4

REPORT INFORMATION
  Report Type: 
  Country: None (occurrence: None)
  Receive Date: 20071211
  Receipt Date: 20071211
  Transmission Date: 20080405
  Serious: Yes (Life-Threatening, Hospitalization)
  Sender: FDA-Public Use
  Company Number: None

PATIENT
  Age: 78 Year
  Sex: Female

DRUGS (9)
  1. WARFARIN SODIUM [Suspect]
     Dosage: DAILY PO
     Route: 048
  2. ASPIRIN [Suspect]
     Indication: CORONARY ARTERY DISEASE
     Dosage: DAILY PO
     Route: 048
  3. WARFARIN SODIUM [Concomitant]
  4. ASPIRIN [Concomitant]
  5. SYNTHROID [Concomitant]
  6. CRESTOR [Concomitant]
  7. METFORMIN HCL [Concomitant]
  8. ANTIVERT [Concomitant]
  9. ATIVAN [Concomitant]

REACTIONS (6)
  - CEREBELLAR HAEMORRHAGE [None]
  - COAGULOPATHY [None]
  - DIZZINESS [None]
  - NAUSEA [None]
  - NECK PAIN [None]
  - VOMITING [None]
